FAERS Safety Report 4804032-0 (Version None)
Quarter: 2005Q4

REPORT INFORMATION
  Report Type: 
  Country: None (occurrence: None)
  Receive Date: 20051018
  Receipt Date: 20051018
  Transmission Date: 20060501
  Serious: Yes (Hospitalization)
  Sender: FDA-Public Use
  Company Number: None

PATIENT
  Age: 81 Year
  Sex: Male
  Weight: 100 kg

DRUGS (9)
  1. DEPO-DUR 10 MG INJECTION (ENDO PHARMACEUTICALS) [Suspect]
     Indication: KNEE ARTHROPLASTY
     Dosage: 10 MG EPIDURAL
     Route: 008
     Dates: start: 20050805
  2. ASPIRIN [Concomitant]
  3. LOVENOX [Concomitant]
  4. MICRONASE [Concomitant]
  5. COZAAR [Concomitant]
  6. LOPRESSOR [Concomitant]
  7. FLOMAX [Concomitant]
  8. COUMADIN [Concomitant]
  9. REGULAR INSULIN [Concomitant]

REACTIONS (3)
  - DYSPNOEA [None]
  - HYPOXIA [None]
  - RESPIRATORY FAILURE [None]
